FAERS Safety Report 7184502-3 (Version None)
Quarter: 2010Q4

REPORT INFORMATION
  Report Type: 
  Country: None (occurrence: None)
  Receive Date: 20101222
  Receipt Date: 20101213
  Transmission Date: 20110411
  Serious: Yes (Life-Threatening, Hospitalization, Other)
  Sender: FDA-Public Use
  Company Number: US-ACTELION-A-NJ2010-42195

PATIENT

DRUGS (9)
  1. BOSENTAN TABLET 62.5 MG US [Suspect]
     Indication: PULMONARY ARTERIAL HYPERTENSION
     Dosage: 62.5 MG, BID
     Route: 048
     Dates: start: 20101011, end: 20101015
  2. LISINOPRIL [Suspect]
  3. ASPIRIN [Concomitant]
  4. INSULIN [Concomitant]
  5. LASIX [Concomitant]
  6. NEXIUM [Concomitant]
  7. COREG [Concomitant]
  8. ADVAIR [Concomitant]
  9. NORVASC [Concomitant]

REACTIONS (4)
  - FATIGUE [None]
  - HYPERKALAEMIA [None]
  - INFLUENZA LIKE ILLNESS [None]
  - MYALGIA [None]
